FAERS Safety Report 19855223 (Version 1)
Quarter: 2021Q3

REPORT INFORMATION
  Report Type: Spontaneous
  Country: US (occurrence: US)
  Receive Date: 20210919
  Receipt Date: 20210919
  Transmission Date: 20211014
  Serious: Yes (Life-Threatening, Hospitalization)
  Sender: FDA-Public Use
  Company Number: None

PATIENT
  Age: 55 Year
  Sex: Female
  Weight: 108 kg

DRUGS (1)
  1. OXCARBAZEPINE (GENERIC FOR TRILEPTAL) [Suspect]
     Active Substance: OXCARBAZEPINE
     Indication: BIPOLAR DISORDER
     Dosage: ?          QUANTITY:1 TABLET(S);?
     Route: 048

REACTIONS (15)
  - Oedema [None]
  - Fatigue [None]
  - Muscle spasms [None]
  - Headache [None]
  - Malnutrition [None]
  - Joint swelling [None]
  - Pruritus [None]
  - Hyponatraemia [None]
  - Bone pain [None]
  - Asthenia [None]
  - Confusional state [None]
  - Nausea [None]
  - Peripheral swelling [None]
  - Weight decreased [None]
  - Abdominal pain upper [None]
